FAERS Safety Report 8342164 (Version 2)
Quarter: 2013Q2

REPORT INFORMATION
  Report Type: Spontaneous
  Country: US (occurrence: None)
  Receive Date: 20111202
  Receipt Date: 20121203
  Transmission Date: 20140414
  Serious: Yes (Hospitalization, Disabling)
  Sender: FDA-Public Use
  Company Number: 2011SP015133

PATIENT
  Age: 31 Year
  Sex: Female
  Weight: 108.9 kg

DRUGS (1)
  1. NUVARING [Suspect]
     Indication: PRODUCT USED FOR UNKNOWN INDICATION
     Dates: start: 200810, end: 20090420

REACTIONS (6)
  - DEEP VEIN THROMBOSIS [None]
  - Thrombophlebitis [None]
  - Upper respiratory tract infection [None]
  - Anaemia [None]
  - Post thrombotic syndrome [None]
  - Lymphadenopathy [None]
